FAERS Safety Report 4299937-6 (Version None)
Quarter: 2004Q1

REPORT INFORMATION
  Report Type: 
  Country: None (occurrence: None)
  Receive Date: 20040220
  Receipt Date: 20040104
  Transmission Date: 20041129
  Serious: Yes (Life-Threatening, Hospitalization)
  Sender: FDA-Public Use
  Company Number: PHEH2004US00484

PATIENT
  Age: 85 Year
  Sex: Male
  Weight: 70 kg

DRUGS (4)
  1. ZOMETA [Suspect]
     Indication: METASTASES TO BONE
     Dosage: 4 MG, ONCE/SINGLE
     Route: 042
     Dates: start: 20031219
  2. LEUPROLIDE ACETATE [Concomitant]
     Indication: PROSTATE CANCER METASTATIC
     Dosage: 22.5 MG, UNK
     Route: 030
     Dates: start: 20031219
  3. FUROSEMIDE [Concomitant]
     Indication: OEDEMA PERIPHERAL
     Dosage: 40 MG, QD
     Route: 048
  4. DEXAMETHASONE [Concomitant]

REACTIONS (8)
  - AGITATION [None]
  - CONFUSIONAL STATE [None]
  - ELECTROCARDIOGRAM CHANGE [None]
  - ELECTROCARDIOGRAM QT PROLONGED [None]
  - HYPOCALCAEMIA [None]
  - PROSTATE CANCER RECURRENT [None]
  - VENTRICULAR EXTRASYSTOLES [None]
  - VENTRICULAR TACHYCARDIA [None]
